FAERS Safety Report 13865012 (Version 3)
Quarter: 2017Q3

REPORT INFORMATION
  Report Type: Report from Study
  Country: None (occurrence: NL)
  Receive Date: 20170814
  Receipt Date: 20170816
  Transmission Date: 20171127
  Serious: Yes (Death)
  Sender: FDA-Public Use
  Company Number: NL-ABBVIE-17K-114-2069320-00

PATIENT
  Sex: Male

DRUGS (1)
  1. DUODOPA [Suspect]
     Active Substance: CARBIDOPA\LEVODOPA
     Indication: PARKINSON^S DISEASE
     Dosage: MD 17, CD 3.6, ED 3
     Route: 050
     Dates: start: 20170721

REACTIONS (3)
  - Peritonitis [Fatal]
  - Gastric disorder [Fatal]
  - Intentional medical device removal by patient [Unknown]

NARRATIVE: CASE EVENT DATE: 2017
